FAERS Safety Report 16000391 (Version 1)
Quarter: 2019Q1

REPORT INFORMATION
  Report Type: Spontaneous
  Country: FR (occurrence: FR)
  Receive Date: 20190225
  Receipt Date: 20190225
  Transmission Date: 20190418
  Serious: Yes (Hospitalization)
  Sender: FDA-Public Use
  Company Number: FR-MYLANLABS-2019M1006238

PATIENT
  Age: 84 Year
  Sex: Female
  Weight: 51 kg

DRUGS (3)
  1. MONOPROST [Concomitant]
     Active Substance: LATANOPROST
     Indication: GLAUCOMA
     Dosage: 1 GTT DROPS, QD (AT NIGHT)
  2. TELMISARTAN/HYDROCHLOROTHIAZIDE MYLAN PHARMA 80 MG/25 MG, COMPRIM? [Suspect]
     Active Substance: HYDROCHLOROTHIAZIDE\TELMISARTAN
     Indication: PRODUCT USED FOR UNKNOWN INDICATION
     Dosage: 1 DOSAGE FORM, AM (IN THE MORNING)
     Dates: start: 20190105, end: 20190111
  3. ICAZ [Concomitant]
     Active Substance: ISRADIPINE
     Dosage: 5 MILLIGRAM, QD (FOR MORE THAN 6 YEARS)

REACTIONS (15)
  - Hypoaesthesia [Recovering/Resolving]
  - Erythema [Recovering/Resolving]
  - Vomiting [Recovered/Resolved]
  - Headache [Recovered/Resolved]
  - Oropharyngeal plaque [Recovering/Resolving]
  - Myalgia [Recovering/Resolving]
  - Back pain [Recovering/Resolving]
  - Pain in extremity [Recovering/Resolving]
  - Insomnia [Recovering/Resolving]
  - Paraesthesia [Not Recovered/Not Resolved]
  - Balance disorder [Recovered/Resolved]
  - Heart rate increased [Recovered/Resolved]
  - Formication [Recovering/Resolving]
  - Arthralgia [Not Recovered/Not Resolved]
  - Dry mouth [Recovering/Resolving]

NARRATIVE: CASE EVENT DATE: 20190106
